FAERS Safety Report 7822991-9 (Version None)
Quarter: 2011Q4

REPORT INFORMATION
  Report Type: 
  Country: None (occurrence: None)
  Receive Date: 20111018
  Receipt Date: 20110131
  Transmission Date: 20120403
  Serious: No
  Sender: FDA-Public Use
  Company Number: US-ASTRAZENECA-2011SE05461

PATIENT
  Age: 76 Year
  Sex: Male
  Weight: 102 kg

DRUGS (9)
  1. SYMBICORT [Suspect]
     Indication: CHRONIC OBSTRUCTIVE PULMONARY DISEASE
     Dosage: 80/4.5 MCG TWO PUFFS TWICE DAILY
     Route: 055
     Dates: start: 20100101
  2. NICOTINE POLACRILEX [Suspect]
     Indication: NICOTINE DEPENDENCE
     Dosage: 1 PIECE EVERY 2-4 HOURS AS REQUIRED
     Route: 002
     Dates: start: 20100701
  3. FUROSEMIDE [Suspect]
     Route: 048
     Dates: start: 19990101
  4. ATROVENT [Suspect]
     Indication: CHRONIC OBSTRUCTIVE PULMONARY DISEASE
     Dosage: TWO PUFFS FOUR TIMES A DAY
     Route: 055
     Dates: start: 20100101
  5. FOLIC ACID [Suspect]
     Route: 048
     Dates: start: 19990101
  6. METOPROLOL TARTRATE [Suspect]
     Indication: CARDIAC DISORDER
     Route: 048
     Dates: start: 19990101
  7. WARFARIN SODIUM [Suspect]
     Indication: COAGULOPATHY
     Route: 048
     Dates: start: 19990101
  8. PRAVASTATIN SODIUM [Suspect]
     Indication: HYPERCHOLESTEROLAEMIA
     Route: 048
     Dates: start: 19990101
  9. VITAMIN D [Suspect]
     Route: 048
     Dates: start: 19990101

REACTIONS (4)
  - LIPOATROPHY [None]
  - SKIN WRINKLING [None]
  - LACERATION [None]
  - SKIN ATROPHY [None]
